FAERS Safety Report 9364955 (Version 2)
Quarter: 2013Q3

REPORT INFORMATION
  Report Type: Spontaneous
  Country: US (occurrence: US)
  Receive Date: 20130624
  Receipt Date: 20130805
  Transmission Date: 20140515
  Serious: No
  Sender: FDA-Public Use
  Company Number: US-PFIZER INC-2013188040

PATIENT
  Age: 59 Year
  Sex: Female
  Weight: 56 kg

DRUGS (4)
  1. CHANTIX [Suspect]
     Indication: SMOKING CESSATION THERAPY
     Dosage: 0.5 MG (1MG HALFT AT H.S.)
     Route: 048
     Dates: start: 20130606, end: 20130608
  2. CHANTIX [Suspect]
     Dosage: 0.5 MG (HALF 1MG TABLET), 2X/DAY
     Route: 048
     Dates: start: 20130609, end: 20130612
  3. CHANTIX [Suspect]
     Dosage: 1 MG, 2X/DAY
     Route: 048
     Dates: start: 20130613, end: 20130613
  4. CHANTIX [Suspect]
     Dosage: UNK
     Route: 048
     Dates: start: 20130623

REACTIONS (6)
  - Abnormal dreams [Unknown]
  - Cough [Unknown]
  - Tobacco user [Unknown]
  - Nervousness [Not Recovered/Not Resolved]
  - Feeling jittery [Not Recovered/Not Resolved]
  - Heart rate increased [Not Recovered/Not Resolved]
